FAERS Safety Report 6036104-X (Version None)
Quarter: 2009Q1

REPORT INFORMATION
  Report Type: 
  Country: None (occurrence: None)
  Receive Date: 20090113
  Receipt Date: 20090106
  Transmission Date: 20090719
  Serious: Yes (Other)
  Sender: FDA-Public Use
  Company Number: US-JNJCH-2009000498

PATIENT
  Age: 14 Year
  Sex: Male

DRUGS (1)
  1. BENADRYL [Suspect]
     Indication: EUPHORIC MOOD
     Dosage: TEXT:15 PILLS ALL AT ONCE
     Route: 048

REACTIONS (2)
  - DRUG ABUSE [None]
  - HALLUCINATION [None]
